FAERS Safety Report 16138642 (Version 7)
Quarter: 2020Q1

REPORT INFORMATION
  Report Type: Report from Study
  Country: US (occurrence: US)
  Receive Date: 20190330
  Receipt Date: 20200212
  Transmission Date: 20200409
  Serious: No
  Sender: FDA-Public Use
  Company Number: PHEH2019US013671

PATIENT
  Sex: Male
  Weight: 52.15 kg

DRUGS (2)
  1. COSENTYX [Suspect]
     Active Substance: SECUKINUMAB
     Dosage: 300 MG, QMO
     Route: 058
  2. COSENTYX [Suspect]
     Active Substance: SECUKINUMAB
     Indication: PSORIASIS
     Dosage: 300 MG, QMO
     Route: 058

REACTIONS (8)
  - Muscle spasms [Not Recovered/Not Resolved]
  - Depression [Unknown]
  - Wound [Unknown]
  - Animal attack [Unknown]
  - Drug ineffective [Unknown]
  - Myalgia [Not Recovered/Not Resolved]
  - Rotator cuff syndrome [Unknown]
  - Localised infection [Unknown]
